FAERS Safety Report 12445145 (Version 2)
Quarter: 2016Q2

REPORT INFORMATION
  Report Type: Report from Study
  Country: FR (occurrence: FR)
  Receive Date: 20160607
  Receipt Date: 20160608
  Transmission Date: 20160815
  Serious: Yes (Death, Hospitalization, Other)
  Sender: FDA-Public Use
  Company Number: FR-ABBVIE-16P-056-1643911-00

PATIENT
  Age: 56 Year
  Sex: Male
  Weight: 73 kg

DRUGS (4)
  1. LEVEMIR [Concomitant]
     Active Substance: INSULIN DETEMIR
     Indication: DIABETES MELLITUS
     Route: 058
     Dates: start: 20141020
  2. ONGLYZA [Concomitant]
     Active Substance: SAXAGLIPTIN HYDROCHLORIDE
     Indication: DIABETES MELLITUS
     Route: 065
     Dates: start: 20150130
  3. EXVIERA [Suspect]
     Active Substance: DASABUVIR
     Indication: HEPATITIS C
     Route: 048
     Dates: start: 20150914, end: 20151207
  4. VIEKIRAX [Suspect]
     Active Substance: OMBITASVIR\PARITAPREVIR\RITONAVIR
     Indication: HEPATITIS C
     Dosage: 12.5/75/50MG X 2 (ONCE DAILY)
     Route: 048
     Dates: start: 20150914, end: 20151207

REACTIONS (15)
  - Hypokalaemia [Not Recovered/Not Resolved]
  - Hypokalaemia [Recovering/Resolving]
  - Jaundice [Recovering/Resolving]
  - Hepatic encephalopathy [Recovering/Resolving]
  - Ascites [Recovering/Resolving]
  - Hypothermia [Fatal]
  - Hyperbilirubinaemia [Recovering/Resolving]
  - Hepatic encephalopathy [Recovering/Resolving]
  - General physical health deterioration [Not Recovered/Not Resolved]
  - Hypokalaemia [Not Recovered/Not Resolved]
  - Altered state of consciousness [Fatal]
  - Sepsis [Fatal]
  - Hypotension [Fatal]
  - Hyperbilirubinaemia [Unknown]
  - Hyperbilirubinaemia [Recovering/Resolving]

NARRATIVE: CASE EVENT DATE: 20150922
